FAERS Safety Report 5647950-6 (Version None)
Quarter: 2008Q1

REPORT INFORMATION
  Report Type: 
  Country: None (occurrence: None)
  Receive Date: 20080229
  Receipt Date: 20080216
  Transmission Date: 20080703
  Serious: Yes (Congenital Anomaly)
  Sender: FDA-Public Use
  Company Number: 8025992

PATIENT
  Sex: Male
  Weight: 3.57 kg

DRUGS (4)
  1. KEPPRA [Suspect]
     Indication: EPILEPSY
     Dosage: 500 MG /D TRP
     Route: 064
     Dates: start: 20061101, end: 20070706
  2. VITAMIN TAB [Concomitant]
  3. FOLIC ACID [Concomitant]
  4. CHROMAGEN [Concomitant]

REACTIONS (8)
  - CHILD ABUSE [None]
  - CHILD MALTREATMENT SYNDROME [None]
  - CONGENITAL MUSCULOSKELETAL ANOMALY [None]
  - DRUG EXPOSURE DURING PREGNANCY [None]
  - LARGE FOR DATES BABY [None]
  - MATERNAL CONDITION AFFECTING FOETUS [None]
  - TALIPES [None]
  - VICTIM OF CHILD ABUSE [None]
